FAERS Safety Report 10028807 (Version 1)
Quarter: 2014Q1

REPORT INFORMATION
  Report Type: Spontaneous
  Country: FR (occurrence: FR)
  Receive Date: 20140321
  Receipt Date: 20140321
  Transmission Date: 20141002
  Serious: Yes (Other)
  Sender: FDA-Public Use
  Company Number: PHHY2014FR033599

PATIENT
  Age: 36 Year
  Sex: Male

DRUGS (6)
  1. MYCOPHENOLIC ACID [Suspect]
  2. BASILIXIMAB [Suspect]
  3. TACROLIMUS [Suspect]
  4. PREDNISONE [Suspect]
  5. SULFAMETHOXAZOLE+TRIMETHOPRIM [Suspect]
     Indication: INFECTION PROPHYLAXIS
  6. VALGANCICLOVIR [Suspect]
     Indication: INFECTION PROPHYLAXIS

REACTIONS (2)
  - Neutropenia [Recovering/Resolving]
  - Pseudomonas infection [Unknown]
